FAERS Safety Report 5679391-X (Version None)
Quarter: 2008Q1

REPORT INFORMATION
  Report Type: 
  Country: None (occurrence: None)
  Receive Date: 20080325
  Receipt Date: 20080314
  Transmission Date: 20080703
  Serious: Yes (Life-Threatening, Hospitalization, Other)
  Sender: FDA-Public Use
  Company Number: US-ELI_LILLY_AND_COMPANY-US200712004397

PATIENT
  Sex: Female

DRUGS (6)
  1. CYMBALTA [Suspect]
     Dosage: 60 MG, DAILY (1/D)
     Dates: start: 20070704
  2. ALCOHOL [Concomitant]
  3. NORCO [Concomitant]
     Dosage: 10/325
  4. TRAZODONE HCL [Concomitant]
  5. GABAPENTIN [Concomitant]
  6. ELAVIL [Concomitant]

REACTIONS (7)
  - ALCOHOLISM [None]
  - ANAESTHETIC COMPLICATION NEUROLOGICAL [None]
  - DRUG SCREEN POSITIVE [None]
  - DRUG WITHDRAWAL SYNDROME [None]
  - GASTRIC ULCER PERFORATION [None]
  - MOANING [None]
  - SEROTONIN SYNDROME [None]
